FAERS Safety Report 11316354 (Version 1)
Quarter: 2015Q3

REPORT INFORMATION
  Report Type: Report from Study
  Country: US (occurrence: US)
  Receive Date: 20150728
  Receipt Date: 20150728
  Transmission Date: 20151125
  Serious: Yes (Death, Other)
  Sender: FDA-Public Use
  Company Number: US-BAYER-2015-088690

PATIENT
  Age: 57 Year
  Sex: Male
  Weight: 60 kg

DRUGS (18)
  1. MAPAP [Concomitant]
     Active Substance: ACETAMINOPHEN
  2. FAMOTIDINE. [Concomitant]
     Active Substance: FAMOTIDINE
  3. SORAFENIB (RAF KINASE INHIBITOR) [Suspect]
     Active Substance: SORAFENIB
     Indication: HEPATIC CANCER METASTATIC
     Dosage: UNK
  4. DOCUSATE [Concomitant]
     Active Substance: DOCUSATE
  5. ENOXAPARIN [Concomitant]
     Active Substance: ENOXAPARIN
  6. ROBAFEN [CODEINE PHOSPHATE,GUAIFENESIN] [Concomitant]
  7. SORAFENIB (RAF KINASE INHIBITOR) [Suspect]
     Active Substance: SORAFENIB
     Indication: HEPATIC CANCER METASTATIC
     Dosage: 400 MG, BID
     Route: 048
     Dates: start: 20140911
  8. MAGNESIUM OXIDE. [Concomitant]
     Active Substance: MAGNESIUM OXIDE
  9. SENNA [Concomitant]
     Active Substance: SENNA LEAF\SENNOSIDES\SENNOSIDES A AND B
  10. DEXAMETHASONE. [Concomitant]
     Active Substance: DEXAMETHASONE
  11. FLUOXETINE [Concomitant]
     Active Substance: FLUOXETINE\FLUOXETINE HYDROCHLORIDE
  12. ONDANSETRON [Concomitant]
     Active Substance: ONDANSETRON
  13. OXYCODONE [Concomitant]
     Active Substance: OXYCODONE
  14. LORAZEPAM. [Concomitant]
     Active Substance: LORAZEPAM
  15. SORAFENIB (RAF KINASE INHIBITOR) [Suspect]
     Active Substance: SORAFENIB
     Indication: HEPATIC CANCER METASTATIC
     Dosage: 400 MG, BID
     Route: 048
     Dates: start: 20150225, end: 20150303
  16. POLYETHYLENE GLYCOL [Concomitant]
     Active Substance: POLYETHYLENE GLYCOLS
  17. ATORVASTATIN [Concomitant]
     Active Substance: ATORVASTATIN
  18. MORPHINE [Concomitant]
     Active Substance: MORPHINE

REACTIONS (7)
  - Alanine aminotransferase increased [None]
  - Death [Fatal]
  - Hypoventilation [None]
  - Diplegia [None]
  - Decubitus ulcer [None]
  - Urinary tract infection [None]
  - Urinary retention [None]

NARRATIVE: CASE EVENT DATE: 20150304
